FAERS Safety Report 4367864-1 (Version None)
Quarter: 2004Q2

REPORT INFORMATION
  Report Type: 
  Country: None (occurrence: None)
  Receive Date: 20040601
  Receipt Date: 20040601
  Transmission Date: 20050107
  Serious: Yes (Life-Threatening, Hospitalization)
  Sender: FDA-Public Use
  Company Number: None

PATIENT
  Age: 52 Year
  Sex: Male
  Weight: 90.7194 kg

DRUGS (1)
  1. IBUPROFEN [Suspect]
     Indication: ROTATOR CUFF SYNDROME
     Dosage: 4 TABS
     Dates: start: 20040521, end: 20040524

REACTIONS (1)
  - COLITIS ISCHAEMIC [None]
